FAERS Safety Report 7249564-3 (Version None)
Quarter: 2011Q1

REPORT INFORMATION
  Report Type: 
  Country: None (occurrence: None)
  Receive Date: 20110128
  Receipt Date: 20101228
  Transmission Date: 20110831
  Serious: Yes (Death)
  Sender: FDA-Public Use
  Company Number: US-BAYER-2010-004376

PATIENT
  Sex: Male

DRUGS (3)
  1. COUMADIN [Concomitant]
     Indication: THROMBOSIS
     Dosage: UNK
  2. NEXAVAR [Suspect]
     Indication: LEIOMYOSARCOMA
     Dosage: UNK UNK, UNK
  3. ANTINEOPLASTIC AGENTS [Concomitant]
     Dosage: UNK

REACTIONS (3)
  - LIMB INJURY [None]
  - HAEMORRHAGE [None]
  - FALL [None]
